FAERS Safety Report 7013668-0 (Version None)
Quarter: 2010Q3

REPORT INFORMATION
  Report Type: 
  Country: None (occurrence: None)
  Receive Date: 20100924
  Receipt Date: 20100917
  Transmission Date: 20110219
  Serious: Yes (Life-Threatening, Hospitalization)
  Sender: FDA-Public Use
  Company Number: FI-ELI_LILLY_AND_COMPANY-FI201009004571

PATIENT
  Sex: Male
  Weight: 86 kg

DRUGS (2)
  1. GEMZAR [Suspect]
     Dosage: UNK, UNKNOWN
     Route: 042
     Dates: start: 20100601, end: 20100802
  2. CISPLATIN [Concomitant]
     Dosage: 75 MG/M2, UNKNOWN
     Route: 042
     Dates: start: 20100128, end: 20100802

REACTIONS (11)
  - BLOOD PRESSURE DECREASED [None]
  - CHEST PAIN [None]
  - DIZZINESS [None]
  - DYSPNOEA [None]
  - ERYTHEMA [None]
  - GENERAL PHYSICAL HEALTH DETERIORATION [None]
  - HYPERHIDROSIS [None]
  - NEURALGIA [None]
  - PAIN [None]
  - SENSORY DISTURBANCE [None]
  - VENOUS INSUFFICIENCY [None]
